FAERS Safety Report 4655314-7 (Version None)
Quarter: 2005Q2

REPORT INFORMATION
  Report Type: 
  Country: None (occurrence: None)
  Receive Date: 20050404
  Receipt Date: 20041112
  Transmission Date: 20051028
  Serious: No
  Sender: FDA-Public Use
  Company Number: USA041183966

PATIENT
  Age: 47 Year
  Sex: Female

DRUGS (1)
  1. CYMBALTA [Suspect]
     Indication: FIBROMYALGIA
     Dosage: 30 MG/AT NIGHT
     Dates: start: 20041111

REACTIONS (7)
  - ABDOMINAL PAIN UPPER [None]
  - ERYTHEMA [None]
  - INSOMNIA [None]
  - MYALGIA [None]
  - ROSACEA [None]
  - SKIN BURNING SENSATION [None]
  - STOMACH DISCOMFORT [None]
